FAERS Safety Report 7792091-5 (Version None)
Quarter: 2011Q3

REPORT INFORMATION
  Report Type: 
  Country: None (occurrence: None)
  Receive Date: 20110930
  Receipt Date: 20110930
  Transmission Date: 20111222
  Serious: No
  Sender: FDA-Public Use
  Company Number: None

PATIENT
  Age: 64 Year
  Sex: Female
  Weight: 61.2356 kg

DRUGS (1)
  1. SIMVASTATIN [Suspect]
     Indication: BLOOD CHOLESTEROL INCREASED
     Dosage: 80MG DAILY ORAL
     Route: 048
     Dates: start: 20050101

REACTIONS (4)
  - MUSCULAR WEAKNESS [None]
  - ASTHENIA [None]
  - PAIN [None]
  - MYALGIA [None]
